FAERS Safety Report 10069684 (Version 1)
Quarter: 2014Q2

REPORT INFORMATION
  Report Type: Spontaneous
  Country: US (occurrence: None)
  Receive Date: 20140409
  Receipt Date: 20140409
  Transmission Date: 20141212
  Serious: Yes (Life-Threatening, Disabling)
  Sender: FDA-Public Use
  Company Number: None

PATIENT
  Age: 65 Year
  Sex: 0

DRUGS (3)
  1. TRUVADA [Suspect]
     Indication: HIV INFECTION
     Dosage: NORMAL DOSING ONCE, TWICE, TWICE
  2. INTELENCE [Suspect]
  3. ISENTRESS [Suspect]

REACTIONS (4)
  - Hepatic steatosis [None]
  - Pain [None]
  - Abdominal distension [None]
  - Pancreatolithiasis [None]
